FAERS Safety Report 7198669-4 (Version None)
Quarter: 2010Q4

REPORT INFORMATION
  Report Type: 
  Country: None (occurrence: None)
  Receive Date: 20101227
  Receipt Date: 20101216
  Transmission Date: 20110411
  Serious: Yes (Other)
  Sender: FDA-Public Use
  Company Number: GB-JNJFOC-20101206303

PATIENT
  Sex: Female

DRUGS (2)
  1. MICRONOR [Suspect]
     Indication: CONTRACEPTION
     Route: 048
  2. ZOLADEX [Concomitant]
     Indication: MYOMECTOMY
     Route: 065

REACTIONS (1)
  - UTERINE LEIOMYOMA [None]
